FAERS Safety Report 24016247 (Version 6)
Quarter: 2025Q1

REPORT INFORMATION
  Report Type: Spontaneous
  Country: US (occurrence: US)
  Receive Date: 20240626
  Receipt Date: 20250317
  Transmission Date: 20250409
  Serious: Yes (Hospitalization, Other)
  Sender: SANOFI AVENTIS
  Company Number: US-SA-SAC20240621000173

PATIENT
  Age: 8 Month
  Sex: Male

DRUGS (2)
  1. DUPIXENT [Suspect]
     Active Substance: DUPILUMAB
     Indication: Dermatitis atopic
     Dosage: 200 MG, Q4W
     Route: 058
     Dates: start: 202406
  2. DUPIXENT [Suspect]
     Active Substance: DUPILUMAB
     Indication: Dermatitis atopic
     Dosage: 200 MG, Q4W
     Route: 058
     Dates: start: 202406

REACTIONS (11)
  - Influenza [Recovering/Resolving]
  - Dehydration [Recovering/Resolving]
  - Seizure [Unknown]
  - Eye infection [Recovered/Resolved]
  - Eye swelling [Recovered/Resolved]
  - Ocular hyperaemia [Recovered/Resolved]
  - Feeling abnormal [Unknown]
  - Upper respiratory tract infection [Unknown]
  - Dermatitis atopic [Unknown]
  - Intentional dose omission [Unknown]
  - Device use issue [Unknown]

NARRATIVE: CASE EVENT DATE: 20240101
